FAERS Safety Report 16895993 (Version 2)
Quarter: 2019Q4

REPORT INFORMATION
  Report Type: Spontaneous
  Country: US (occurrence: US)
  Receive Date: 20191008
  Receipt Date: 20191016
  Transmission Date: 20200122
  Serious: Yes (Life-Threatening, Hospitalization)
  Sender: FDA-Public Use
  Company Number: US-PFIZER INC-2019430807

PATIENT
  Age: 61 Year
  Sex: Male

DRUGS (2)
  1. LINEZOLID. [Interacting]
     Active Substance: LINEZOLID
     Indication: ENTEROCOCCAL BACTERAEMIA
  2. LINEZOLID. [Suspect]
     Active Substance: LINEZOLID
     Indication: PATHOGEN RESISTANCE
     Dosage: UNK

REACTIONS (3)
  - Drug interaction [Unknown]
  - Toxicity to various agents [Unknown]
  - Lactic acidosis [Unknown]
